FAERS Safety Report 8594263-9 (Version None)
Quarter: 2012Q3

REPORT INFORMATION
  Report Type: 
  Country: None (occurrence: None)
  Receive Date: 20120815
  Receipt Date: 20120806
  Transmission Date: 20120928
  Serious: Yes (Hospitalization)
  Sender: FDA-Public Use
  Company Number: AR-AMGEN-ARGSP2012048615

PATIENT
  Age: 77 Year
  Sex: Male

DRUGS (6)
  1. BETAMETHASONE [Concomitant]
     Dosage: UNK
  2. ENBREL [Suspect]
     Indication: RHEUMATOID ARTHRITIS
     Dosage: 25 MG, 2X/WEEK
     Route: 058
     Dates: start: 20081212
  3. GLYBURIDE [Concomitant]
     Dosage: UNK
     Route: 058
  4. ENALAPRIL MALEATE [Concomitant]
     Dosage: UNK
     Route: 048
  5. CYANOCOBALAMIN [Concomitant]
     Dosage: UNK
  6. DICLOFENAC POTASSIUM [Concomitant]
     Dosage: UNK

REACTIONS (2)
  - DIABETIC FOOT INFECTION [None]
  - DIABETES MELLITUS [None]
